FAERS Safety Report 9199835 (Version 2)
Quarter: 2013Q2

REPORT INFORMATION
  Report Type: Report from Study
  Country: JP (occurrence: JP)
  Receive Date: 20130329
  Receipt Date: 20130501
  Transmission Date: 20140414
  Serious: Yes (Other)
  Sender: FDA-Public Use
  Company Number: JP-ROCHE-1206948

PATIENT
  Sex: Male

DRUGS (6)
  1. RANIBIZUMAB [Suspect]
     Indication: AGE-RELATED MACULAR DEGENERATION
     Route: 050
     Dates: start: 20090319
  2. RANIBIZUMAB [Suspect]
     Route: 050
     Dates: start: 20090413
  3. RANIBIZUMAB [Suspect]
     Route: 050
     Dates: start: 20090511
  4. BEVACIZUMAB [Suspect]
     Indication: AGE-RELATED MACULAR DEGENERATION
     Route: 065
  5. VIGAMOX [Concomitant]
     Route: 065
     Dates: start: 2009, end: 2009
  6. FLOMOX [Concomitant]
     Route: 065
     Dates: start: 20090319, end: 20090512

REACTIONS (2)
  - Retinal haemorrhage [Unknown]
  - Inappropriate schedule of drug administration [Unknown]
